FAERS Safety Report 8353225-7 (Version None)
Quarter: 2012Q2

REPORT INFORMATION
  Report Type: 
  Country: None (occurrence: None)
  Receive Date: 20120511
  Receipt Date: 20120507
  Transmission Date: 20120825
  Serious: Yes (Hospitalization)
  Sender: FDA-Public Use
  Company Number: US-ASTRAZENECA-2012SE07184

PATIENT
  Age: 23 Year
  Sex: Male

DRUGS (4)
  1. VYVANSE [Concomitant]
  2. SEROQUEL [Suspect]
     Route: 048
  3. WELLBUTRIN [Concomitant]
  4. SAFFRUS [Concomitant]

REACTIONS (4)
  - BIPOLAR DISORDER [None]
  - OFF LABEL USE [None]
  - MENTAL DISORDER [None]
  - BIPOLAR I DISORDER [None]
